FAERS Safety Report 12398905 (Version 1)
Quarter: 2016Q2

REPORT INFORMATION
  Report Type: Spontaneous
  Country: CA (occurrence: CA)
  Receive Date: 20160524
  Receipt Date: 20160524
  Transmission Date: 20160815
  Serious: Yes (Hospitalization, Other)
  Sender: FDA-Public Use
  Company Number: CA-TEVA-661999USA

PATIENT
  Age: 57 Year
  Sex: Male
  Weight: 84 kg

DRUGS (15)
  1. FUROSEMIDE. [Concomitant]
     Active Substance: FUROSEMIDE
  2. HEPARIN SODIUM. [Concomitant]
     Active Substance: HEPARIN SODIUM
  3. PROCHLORPERAZINE. [Concomitant]
     Active Substance: PROCHLORPERAZINE
  4. BECLOMETHASONE [Concomitant]
     Active Substance: BECLOMETHASONE
  5. RITUXAN [Concomitant]
     Active Substance: RITUXIMAB
  6. OXAZEPAM. [Concomitant]
     Active Substance: OXAZEPAM
  7. TREANDA [Suspect]
     Active Substance: BENDAMUSTINE HYDROCHLORIDE
     Indication: DIFFUSE LARGE B-CELL LYMPHOMA
     Dosage: 130 MILLIGRAM DAILY;
     Route: 065
  8. CODEINE [Concomitant]
     Active Substance: CODEINE
  9. PANTOPRAZOLE [Concomitant]
     Active Substance: PANTOPRAZOLE SODIUM
  10. SEPTRA DS [Concomitant]
     Active Substance: SULFAMETHOXAZOLE\TRIMETHOPRIM
  11. ASA [Concomitant]
     Active Substance: ASPIRIN
  12. NEUPOGEN [Concomitant]
     Active Substance: FILGRASTIM
  13. DEXAMETHASONE. [Concomitant]
     Active Substance: DEXAMETHASONE
  14. MAGNESIUM [Concomitant]
     Active Substance: MAGNESIUM
  15. AMLODIPINE [Concomitant]
     Active Substance: AMLODIPINE BESYLATE

REACTIONS (4)
  - Necrosis [Not Recovered/Not Resolved]
  - Extremity necrosis [Not Recovered/Not Resolved]
  - Nasal septum perforation [Not Recovered/Not Resolved]
  - Vasculitis [Not Recovered/Not Resolved]
